FAERS Safety Report 24311188 (Version 1)
Quarter: 2024Q3

REPORT INFORMATION
  Report Type: Spontaneous
  Country: BR (occurrence: None)
  Receive Date: 20240912
  Receipt Date: 20240912
  Transmission Date: 20241016
  Serious: Yes (Hospitalization, Other)
  Sender: ASTRAZENECA
  Company Number: 2024A206361

PATIENT
  Age: 39 Year
  Sex: Female

DRUGS (3)
  1. DAPAGLIFLOZIN [Suspect]
     Active Substance: DAPAGLIFLOZIN
     Indication: Type 2 diabetes mellitus
     Dosage: ONCE
     Route: 048
     Dates: start: 202302, end: 20240831
  2. NESINA [Concomitant]
     Active Substance: ALOGLIPTIN BENZOATE
     Dosage: A TABLET
  3. METFORMIN [Concomitant]
     Active Substance: METFORMIN HYDROCHLORIDE
     Dosage: TWO TABLETS

REACTIONS (8)
  - Diabetic ketoacidosis [Recovered/Resolved]
  - Blood bicarbonate decreased [Recovered/Resolved]
  - Blood pH decreased [Recovered/Resolved]
  - Back pain [Recovered/Resolved]
  - Dyspnoea [Recovered/Resolved]
  - Blood pressure increased [Recovered/Resolved]
  - Abdominal pain upper [Recovered/Resolved]
  - Headache [Recovered/Resolved]

NARRATIVE: CASE EVENT DATE: 20240801
